FAERS Safety Report 19878291 (Version 1)
Quarter: 2021Q3

REPORT INFORMATION
  Report Type: Spontaneous
  Country: JP (occurrence: JP)
  Receive Date: 20210924
  Receipt Date: 20210924
  Transmission Date: 20211014
  Serious: Yes (Other)
  Sender: FDA-Public Use
  Company Number: JP-GLAXOSMITHKLINE-JP2021JPN201445

PATIENT
  Age: 29 Year
  Sex: Female

DRUGS (3)
  1. JUMIHAIDOKUTO [Concomitant]
     Indication: ACNE
     Dosage: UNK
     Route: 048
     Dates: start: 20210820, end: 20210821
  2. HIRUDOID LOTION [Concomitant]
     Indication: DRY SKIN PROPHYLAXIS
     Dosage: UNK
     Route: 050
     Dates: start: 20210820, end: 20210821
  3. DUAC GEL [Suspect]
     Active Substance: BENZOYL PEROXIDE\CLINDAMYCIN PHOSPHATE
     Indication: ACNE
     Dosage: UNK QUANTUM LIBET, QD
     Route: 061
     Dates: start: 20210820, end: 20210821

REACTIONS (1)
  - Dermatitis contact [Recovering/Resolving]

NARRATIVE: CASE EVENT DATE: 20210820
